FAERS Safety Report 8209878-7 (Version None)
Quarter: 2012Q1

REPORT INFORMATION
  Report Type: 
  Country: None (occurrence: None)
  Receive Date: 20120314
  Receipt Date: 20120302
  Transmission Date: 20120608
  Serious: Yes (Other)
  Sender: FDA-Public Use
  Company Number: IN-ROCHE-1017462

PATIENT
  Weight: 70 kg

DRUGS (6)
  1. ACETYLSALICYLIC ACID SRT [Concomitant]
  2. METALYSE [Suspect]
     Indication: ACUTE MYOCARDIAL INFARCTION
     Route: 042
     Dates: start: 20111024, end: 20111024
  3. ATORVASTATIN [Concomitant]
  4. CLOPIDOGREL [Concomitant]
     Dosage: 75, MG, 8 TABLETS ADMINISTERED
  5. NICORANDIL [Concomitant]
     Dosage: 2CC PER HOUR
  6. ENOXAPARIN SODIUM [Concomitant]
     Dosage: 60 UNITS EVERY 1/4 HOUR
     Route: 058

REACTIONS (2)
  - ELECTROCARDIOGRAM ST SEGMENT ELEVATION [None]
  - CHEST PAIN [None]
